FAERS Safety Report 9482444 (Version 1)
Quarter: 2013Q3

REPORT INFORMATION
  Report Type: Spontaneous
  Country: CA (occurrence: None)
  Receive Date: 20130822
  Receipt Date: 20130822
  Transmission Date: 20140515
  Serious: No
  Sender: FDA-Public Use
  Company Number: 2013AP007341

PATIENT
  Age: 80 Year
  Sex: Male

DRUGS (1)
  1. APO-OMEPRAZOLE [Suspect]
     Dosage: 20MG;CAP;PO;BIW
     Route: 048

REACTIONS (4)
  - Altered state of consciousness [None]
  - Cardiac arrest [None]
  - Atrioventricular block [None]
  - Syncope [None]
